FAERS Safety Report 8147002-X (Version None)
Quarter: 2012Q1

REPORT INFORMATION
  Report Type: 
  Country: None (occurrence: None)
  Receive Date: 20120217
  Receipt Date: 20120209
  Transmission Date: 20120608
  Serious: Yes (Hospitalization)
  Sender: FDA-Public Use
  Company Number: BR-ASTRAZENECA-2012SE09638

PATIENT
  Age: 93 Year
  Sex: Female
  Weight: 60 kg

DRUGS (1)
  1. ATACAND HCT [Suspect]
     Dosage: 16/2.5 MG
     Route: 048
     Dates: start: 20110101, end: 20120208

REACTIONS (1)
  - THROMBOSIS [None]
